FAERS Safety Report 14380239 (Version 8)
Quarter: 2018Q2

REPORT INFORMATION
  Report Type: Report from Study
  Country: ES (occurrence: ES)
  Receive Date: 20180112
  Receipt Date: 20180420
  Transmission Date: 20180711
  Serious: Yes (Other)
  Sender: FDA-Public Use
  Company Number: ES-PFIZER INC-2018003974

PATIENT
  Age: 83 Year
  Sex: Female
  Weight: 82 kg

DRUGS (7)
  1. PALBOCICLIB [Suspect]
     Active Substance: PALBOCICLIB
     Indication: BREAST CANCER METASTATIC
     Dosage: 125 MG, (21DAYS/7DAYS OFF)
     Route: 048
     Dates: start: 20171107, end: 20171210
  2. METFORMIN [Concomitant]
     Active Substance: METFORMIN HYDROCHLORIDE
     Indication: DIABETES MELLITUS
     Dosage: 1 DF, DAILY, SINCE MORE THAN 5 YRS
     Route: 048
  3. FULVESTRANT. [Suspect]
     Active Substance: FULVESTRANT
     Indication: BREAST CANCER METASTATIC
     Dosage: 500 MG, CYCLIC (EVERY 28 DAYS)
     Route: 030
     Dates: start: 20171107
  4. VOLTIC [Concomitant]
     Indication: ARTHRALGIA
     Dosage: UNK, AS NEEDED
     Route: 048
     Dates: start: 20171026
  5. ATENOLOL. [Concomitant]
     Active Substance: ATENOLOL
     Indication: HYPERTENSION
     Dosage: 50 MG, 2X/DAY (12 HOURS),SINCE MORE THAN 5 YRS
     Route: 048
  6. ENALAPRIL [Concomitant]
     Active Substance: ENALAPRIL
     Indication: HYPERTENSION
     Dosage: 20 MG, 1X/DAY, SINCE MORE THAN 5 YRS
     Route: 048
  7. NOLOTIL (METAMIZOLE MAGNESIUM) [Concomitant]
     Active Substance: METAMIZOLE MAGNESIUM
     Indication: ARTHRALGIA
     Dosage: UNK UNK, PRN
     Route: 048
     Dates: start: 20171026

REACTIONS (1)
  - Hallucinations, mixed [Recovered/Resolved]

NARRATIVE: CASE EVENT DATE: 20171108
